FAERS Safety Report 17931206 (Version 1)
Quarter: 2020Q2

REPORT INFORMATION
  Report Type: Spontaneous
  Country: NO (occurrence: NO)
  Receive Date: 20200623
  Receipt Date: 20200623
  Transmission Date: 20200714
  Serious: Yes (Hospitalization)
  Sender: FDA-Public Use
  Company Number: NVSC2020NO176163

PATIENT
  Age: 65 Year
  Sex: Male

DRUGS (1)
  1. COSENTYX [Suspect]
     Active Substance: SECUKINUMAB
     Indication: ANKYLOSING SPONDYLITIS
     Dosage: UNK (IN START UP DOSAGE, PLANNED MAINTENANCE INJECTION 1 TIME / MONTH)
     Route: 058
     Dates: start: 20200305

REACTIONS (2)
  - Oral candidiasis [Recovering/Resolving]
  - Fungal oesophagitis [Recovering/Resolving]

NARRATIVE: CASE EVENT DATE: 20200411
